FAERS Safety Report 8115468-7 (Version None)
Quarter: 2012Q1

REPORT INFORMATION
  Report Type: 
  Country: None (occurrence: None)
  Receive Date: 20120206
  Receipt Date: 20120127
  Transmission Date: 20120608
  Serious: Yes (Hospitalization)
  Sender: FDA-Public Use
  Company Number: GB-ASTRAZENECA-2011SE60905

PATIENT
  Age: 13766 Day
  Sex: Female

DRUGS (15)
  1. TRAZODONE HCL [Concomitant]
     Indication: INSOMNIA
     Route: 048
  2. NKTR-118 CODE NOT BROKEN [Concomitant]
     Indication: CONSTIPATION
     Dosage: ONCE DAILY
     Route: 048
     Dates: start: 20110830, end: 20111003
  3. ZOCOR [Concomitant]
     Indication: BLOOD CHOLESTEROL INCREASED
     Route: 048
  4. SEROQUEL [Concomitant]
     Indication: INSOMNIA
     Route: 048
  5. MOBIC [Concomitant]
     Indication: ARTHRITIS
     Route: 048
  6. LORTAB [Concomitant]
     Indication: ARTHRITIS
     Route: 048
     Dates: start: 20110705
  7. HYDROCHLOROTHIAZIDE [Suspect]
     Indication: HYPERTENSION
     Route: 048
     Dates: end: 20111003
  8. XANAX [Concomitant]
     Indication: ANXIETY
     Route: 048
  9. GABAPENTIN [Concomitant]
     Indication: NEUROPATHY PERIPHERAL
     Route: 048
  10. LISINOPRIL [Suspect]
     Indication: HYPERTENSION
     Route: 048
     Dates: end: 20111003
  11. PROZAC [Concomitant]
     Indication: DEPRESSION
     Route: 048
  12. ONDANSETRON HCL [Concomitant]
     Indication: NAUSEA
     Route: 042
     Dates: start: 20111003, end: 20111003
  13. BACLOFEN [Concomitant]
     Indication: MUSCLE SPASMS
     Route: 048
  14. SEROQUEL [Concomitant]
     Indication: DEPRESSION
     Route: 048
  15. KEFZOL [Concomitant]
     Indication: LACERATION
     Route: 042
     Dates: start: 20111003, end: 20111003

REACTIONS (4)
  - HYPOTENSION [None]
  - HYPONATRAEMIA [None]
  - SYNCOPE [None]
  - HYPOKALAEMIA [None]
